FAERS Safety Report 5601514-9 (Version None)
Quarter: 2008Q1

REPORT INFORMATION
  Report Type: 
  Country: None (occurrence: None)
  Receive Date: 20080124
  Receipt Date: 20071017
  Transmission Date: 20080703
  Serious: No
  Sender: FDA-Public Use
  Company Number: US-BAYER-200711711BCC

PATIENT
  Age: 48 Year
  Sex: Female
  Weight: 68 kg

DRUGS (4)
  1. ALEVE COLD AND SINUS [Suspect]
     Indication: HANGOVER
     Dosage: TOTAL DAILY DOSE: 220 MG  UNIT DOSE: 220 MG
     Route: 048
     Dates: start: 20070524
  2. UNKNOWN BRAND OF MULTIVITAMIN [Concomitant]
  3. UNKNOWN BRAND OF DIURETIC [Concomitant]
     Route: 048
  4. UNKNOWN BRAND OF LAXATIVE CAPLET [Concomitant]

REACTIONS (4)
  - IRRITABILITY [None]
  - PALPITATIONS [None]
  - SLEEP DISORDER [None]
  - THIRST [None]
